FAERS Safety Report 23017724 (Version 1)
Quarter: 2023Q4

REPORT INFORMATION
  Report Type: Report from Study
  Country: CA (occurrence: CA)
  Receive Date: 20231003
  Receipt Date: 20231003
  Transmission Date: 20240110
  Serious: Yes (Hospitalization, Other)
  Sender: FDA-Public Use
  Company Number: CA-JNJFOC-20220253494

PATIENT
  Age: 41 Year
  Sex: Female

DRUGS (2)
  1. STELARA [Suspect]
     Active Substance: USTEKINUMAB
     Indication: Crohn^s disease
     Dosage: EXPIRY DATE:31-OCT-2024?EXPIRY DATE:30-JUN-2025
     Route: 058
     Dates: start: 20210126
  2. STELARA [Suspect]
     Active Substance: USTEKINUMAB
     Dosage: IV RELOAD
     Route: 042

REACTIONS (12)
  - Postoperative wound infection [Recovered/Resolved]
  - Intestinal obstruction [Not Recovered/Not Resolved]
  - Wound dehiscence [Recovered/Resolved]
  - Intestinal stenosis [Unknown]
  - Inflammatory bowel disease [Unknown]
  - Large intestine anastomosis [Unknown]
  - Crohn^s disease [Unknown]
  - Impaired healing [Unknown]
  - Abdominal hernia [Not Recovered/Not Resolved]
  - Anal fistula [Unknown]
  - Off label use [Unknown]
  - Off label use [Unknown]

NARRATIVE: CASE EVENT DATE: 20210126
